FAERS Safety Report 11881980 (Version 1)
Quarter: 2015Q4

REPORT INFORMATION
  Report Type: Spontaneous
  Country: IT (occurrence: IT)
  Receive Date: 20151231
  Receipt Date: 20151231
  Transmission Date: 20160305
  Serious: Yes (Death, Hospitalization)
  Sender: FDA-Public Use
  Company Number: IT-PFIZER INC-2015470217

PATIENT
  Age: 64 Year
  Sex: Male

DRUGS (4)
  1. LINEZOLID. [Suspect]
     Active Substance: LINEZOLID
     Indication: ACUTE RESPIRATORY FAILURE
     Dosage: 1200 MG, DAILY
     Route: 041
  2. AMPHOTERICINE B [Concomitant]
     Active Substance: AMPHOTERICIN B
     Indication: ACUTE RESPIRATORY FAILURE
     Dosage: UNK
  3. MEROPENEM. [Concomitant]
     Active Substance: MEROPENEM
     Indication: ACUTE RESPIRATORY FAILURE
     Dosage: UNK
  4. METHYLPREDNISOLONE. [Concomitant]
     Active Substance: METHYLPREDNISOLONE
     Indication: TRANSPLANT REJECTION
     Dosage: 1 G, DAILY

REACTIONS (1)
  - Lactic acidosis [Fatal]
